FAERS Safety Report 10206602 (Version 3)
Quarter: 2015Q4

REPORT INFORMATION
  Report Type: Spontaneous
  Country: US (occurrence: US)
  Receive Date: 20140530
  Receipt Date: 20151012
  Transmission Date: 20160304
  Serious: Yes (Hospitalization, Other)
  Sender: FDA-Public Use
  Company Number: US-GLAXOSMITHKLINE-A1059094A

PATIENT
  Sex: Female

DRUGS (3)
  1. FLOLAN [Suspect]
     Active Substance: EPOPROSTENOL SODIUM
     Indication: PULMONARY ARTERIAL HYPERTENSION
     Dosage: 32.5 NG/KG/MIN AT 45,000 NG/ML AT 1.5 MG VIAL STRENGTH
     Route: 042
     Dates: start: 20010727
  2. WARFARIN [Concomitant]
     Active Substance: WARFARIN
  3. FLOLAN [Suspect]
     Active Substance: EPOPROSTENOL SODIUM
     Dosage: 32.5 NG/KG/MIN CONTINUOUS, CONCENTRATION: 45,000 NG/ML; PUMP RATE: 90 ML/24HR; VIAL STRENGTH: 1.5 MG
     Dates: start: 20010517

REACTIONS (3)
  - Hospitalisation [Unknown]
  - Device related infection [Unknown]
  - Diabetes mellitus [Unknown]
